FAERS Safety Report 14624043 (Version 1)
Quarter: 2018Q1

REPORT INFORMATION
  Report Type: Spontaneous
  Country: DE (occurrence: DE)
  Receive Date: 20180312
  Receipt Date: 20180312
  Transmission Date: 20180509
  Serious: Yes (Other)
  Sender: FDA-Public Use
  Company Number: DE-ROCHE-2086183

PATIENT
  Age: 25 Year
  Sex: Male

DRUGS (3)
  1. RITUXIMAB. [Suspect]
     Active Substance: RITUXIMAB
     Route: 065
  2. IMATINIB [Suspect]
     Active Substance: IMATINIB
     Indication: ROSAI-DORFMAN SYNDROME
     Dosage: UNK
     Route: 065
  3. RITUXIMAB. [Suspect]
     Active Substance: RITUXIMAB
     Indication: ROSAI-DORFMAN SYNDROME
     Dosage: UNK, SECOND LINE THERAPY
     Route: 065

REACTIONS (3)
  - General physical health deterioration [Unknown]
  - Lymphadenopathy [Recovering/Resolving]
  - Disease progression [Recovered/Resolved]
